FAERS Safety Report 17787352 (Version 1)
Quarter: 2020Q2

REPORT INFORMATION
  Report Type: Spontaneous
  Country: AR (occurrence: AR)
  Receive Date: 20200514
  Receipt Date: 20200514
  Transmission Date: 20200714
  Serious: Yes (Other)
  Sender: FDA-Public Use
  Company Number: AR-ASTRAZENECA-2020SE63064

PATIENT
  Sex: Female

DRUGS (1)
  1. FREVIA [Suspect]
     Active Substance: BUDESONIDE\FORMOTEROL
     Indication: ASTHMA
     Dosage: 160.0UG UNKNOWN
     Route: 055
     Dates: start: 2008

REACTIONS (2)
  - Asthmatic crisis [Unknown]
  - Incorrect dose administered [Unknown]

NARRATIVE: CASE EVENT DATE: 2018
